FAERS Safety Report 8941489 (Version 1)
Quarter: 2012Q4

REPORT INFORMATION
  Report Type: 
  Country: US (occurrence: US)
  Receive Date: 20121203
  Receipt Date: 20121203
  Transmission Date: 20130627
  Serious: Yes (Disabling)
  Sender: FDA-Public Use
  Company Number: US-ABBOTT-12P-163-1015514-00

PATIENT
  Sex: Female

DRUGS (1)
  1. HUMIRA (ABBOTT) [Suspect]
     Indication: PRODUCT USED FOR UNKNOWN INDICATION
     Dates: start: 201009

REACTIONS (6)
  - Aphasia [Not Recovered/Not Resolved]
  - Blindness [Not Recovered/Not Resolved]
  - Balance disorder [Not Recovered/Not Resolved]
  - Insomnia [Not Recovered/Not Resolved]
  - Tremor [Not Recovered/Not Resolved]
  - Demyelination [Not Recovered/Not Resolved]
